FAERS Safety Report 17544593 (Version 2)
Quarter: 2020Q2

REPORT INFORMATION
  Report Type: Spontaneous
  Country: IT (occurrence: IT)
  Receive Date: 20200316
  Receipt Date: 20200511
  Transmission Date: 20200713
  Serious: Yes (Other)
  Sender: FDA-Public Use
  Company Number: IT-ACCORD-175705

PATIENT
  Age: 60 Year
  Sex: Female

DRUGS (2)
  1. PALBOCICLIB [Suspect]
     Active Substance: PALBOCICLIB
     Indication: BREAST CANCER
     Dosage: 125 MG/D  21-D-ON,?7-D-OFF BASIS
     Route: 048
     Dates: start: 201811, end: 201905
  2. LETROZOLE. [Suspect]
     Active Substance: LETROZOLE
     Indication: BREAST CANCER
     Dosage: 2.5 MG/D
     Route: 048
     Dates: start: 201811

REACTIONS (8)
  - Glossodynia [Recovered/Resolved]
  - Dry mouth [Recovered/Resolved]
  - Therapeutic product effect incomplete [Unknown]
  - Paraesthesia [Recovered/Resolved]
  - Neutropenia [Unknown]
  - Tongue discomfort [Recovered/Resolved]
  - Dysaesthesia [Recovered/Resolved]
  - Dysgeusia [Recovered/Resolved]

NARRATIVE: CASE EVENT DATE: 201811
